FAERS Safety Report 20743308 (Version 2)
Quarter: 2022Q2

REPORT INFORMATION
  Report Type: Spontaneous
  Country: BR (occurrence: BR)
  Receive Date: 20220425
  Receipt Date: 20220519
  Transmission Date: 20220721
  Serious: Yes (Death)
  Sender: FDA-Public Use
  Company Number: BR-SA-SAC20220204001405

PATIENT
  Age: 37 Year
  Sex: Female
  Weight: 74 kg

DRUGS (2)
  1. SARCLISA [Suspect]
     Active Substance: ISATUXIMAB-IRFC
     Indication: Plasma cell myeloma
     Dates: start: 20220117
  2. CARFILZOMIB;DEXAMETHASONE [Concomitant]
     Dosage: UNK
     Dates: start: 20220117, end: 20220118

REACTIONS (2)
  - Disease progression [Fatal]
  - Performance status decreased [Unknown]

NARRATIVE: CASE EVENT DATE: 20220125
